FAERS Safety Report 21958669 (Version 1)
Quarter: 2023Q1

REPORT INFORMATION
  Report Type: Spontaneous
  Country: DE (occurrence: DE)
  Receive Date: 20230206
  Receipt Date: 20230206
  Transmission Date: 20230417
  Serious: Yes (Life-Threatening, Hospitalization)
  Sender: FDA-Public Use
  Company Number: DE-Carino-221227-01

PATIENT
  Age: 16 Week
  Sex: Female

DRUGS (8)
  1. EPINEPHRINE [Suspect]
     Active Substance: EPINEPHRINE
     Indication: Cardiogenic shock
     Dosage: 0.2 MILLIMOLE PER KILOGRAM/MIN
     Route: 042
  2. SPIRONOLACTONE [Suspect]
     Active Substance: SPIRONOLACTONE
     Indication: Pulmonary hypertension
     Dosage: 5 MILLIGRAM, 12 HOURS
     Route: 048
  3. LEVOSIMENDAN [Suspect]
     Active Substance: LEVOSIMENDAN
     Indication: Cardiogenic shock
     Dosage: 0.12 MILLIGRAM/KILOGRAM/MIN
     Route: 042
  4. NOREPINEPHRINE [Suspect]
     Active Substance: NOREPINEPHRINE
     Indication: Cardiogenic shock
     Dosage: 0.2 MILLIGRAM/KILOGRAM/MIN
     Route: 042
  5. SILDENAFIL [Suspect]
     Active Substance: SILDENAFIL
     Indication: Pulmonary hypertension
     Dosage: 3.1 MILLIGRAM/KILOGRAM/DAY
     Route: 042
  6. NITRIC OXIDE [Suspect]
     Active Substance: NITRIC OXIDE
     Indication: Pulmonary hypertension
     Dosage: 20 PPM
  7. MILRINONE [Suspect]
     Active Substance: MILRINONE
     Indication: Cardiogenic shock
     Dosage: 0.7 MILLIGRAM/KILOGRAM/MIN
     Route: 042
  8. MACITENTAN [Suspect]
     Active Substance: MACITENTAN
     Indication: Pulmonary hypertension
     Dosage: 4 MILLIGRAM, Q6H
     Route: 048

REACTIONS (3)
  - Pulmonary hypertension [Unknown]
  - Disease progression [Unknown]
  - Drug ineffective [Unknown]
